FAERS Safety Report 11057625 (Version 1)
Quarter: 2015Q2

REPORT INFORMATION
  Report Type: Report from Study
  Country: VE (occurrence: VE)
  Receive Date: 20150422
  Receipt Date: 20150422
  Transmission Date: 20150821
  Serious: Yes (Death, Hospitalization)
  Sender: FDA-Public Use
  Company Number: PHHY2015VE046737

PATIENT
  Sex: Female

DRUGS (4)
  1. SANDIMMUN NEORAL [Suspect]
     Active Substance: CYCLOSPORINE
     Indication: RENAL TRANSPLANT
     Dosage: 100 MG, QD
     Route: 048
     Dates: start: 2013, end: 201410
  2. SANDIMMUN NEORAL [Suspect]
     Active Substance: CYCLOSPORINE
     Indication: IMMUNOSUPPRESSION
  3. MYFORTIC [Suspect]
     Active Substance: MYCOPHENOLATE SODIUM
     Indication: IMMUNOSUPPRESSION
  4. MYFORTIC [Suspect]
     Active Substance: MYCOPHENOLATE SODIUM
     Indication: RENAL TRANSPLANT
     Dosage: QD
     Route: 048
     Dates: start: 2013, end: 201410

REACTIONS (6)
  - Jaundice [Unknown]
  - Micturition disorder [Unknown]
  - Renal impairment [Unknown]
  - Candida infection [Unknown]
  - Haemorrhage [Fatal]
  - Hepatic failure [Unknown]

NARRATIVE: CASE EVENT DATE: 2013
